FAERS Safety Report 16479522 (Version 3)
Quarter: 2019Q3

REPORT INFORMATION
  Report Type: Spontaneous
  Country: US (occurrence: US)
  Receive Date: 20190626
  Receipt Date: 20190829
  Transmission Date: 20191004
  Serious: No
  Sender: FDA-Public Use
  Company Number: US-BIOGEN-2019BI00755381

PATIENT
  Sex: Male

DRUGS (2)
  1. TECFIDERA [Suspect]
     Active Substance: DIMETHYL FUMARATE
     Indication: MULTIPLE SCLEROSIS
     Dosage: FOR 7 DAYS
     Route: 065
     Dates: start: 20190612
  2. TECFIDERA [Suspect]
     Active Substance: DIMETHYL FUMARATE
     Route: 048
     Dates: start: 20190627

REACTIONS (7)
  - Eye haemorrhage [Unknown]
  - Chromaturia [Unknown]
  - Pruritus [Recovered/Resolved]
  - Musculoskeletal stiffness [Unknown]
  - Diplopia [Recovered/Resolved]
  - Glassy eyes [Unknown]
  - Decreased appetite [Unknown]
